FAERS Safety Report 9815524 (Version 3)
Quarter: 2014Q2

REPORT INFORMATION
  Report Type: Spontaneous
  Country: BR (occurrence: BR)
  Receive Date: 20140114
  Receipt Date: 20140411
  Transmission Date: 20141212
  Serious: Yes (Other)
  Sender: FDA-Public Use
  Company Number: BR-ELI_LILLY_AND_COMPANY-BR201401000462

PATIENT
  Sex: Female

DRUGS (4)
  1. HUMULIN N [Suspect]
     Indication: DIABETES MELLITUS
     Dosage: 0.5 IU, UNKNOWN
     Route: 058
     Dates: start: 201309
  2. HUMULIN N [Suspect]
     Dosage: 2 IU, UNKNOWN
     Route: 065
     Dates: start: 20140101
  3. HUMAN INSULIN (RDNA ORIGIN) REGULAR [Suspect]
     Indication: DIABETES MELLITUS MANAGEMENT
     Dosage: UNK UNK, UNKNOWN
     Route: 065
  4. LANTUS [Concomitant]
     Indication: PRODUCT USED FOR UNKNOWN INDICATION
     Dosage: UNK, UNKNOWN
     Route: 065

REACTIONS (5)
  - Insulinoma [Not Recovered/Not Resolved]
  - Hypoglycaemic seizure [Unknown]
  - Pancreatic disorder [Not Recovered/Not Resolved]
  - Blood glucose fluctuation [Not Recovered/Not Resolved]
  - Uterine cyst [Not Recovered/Not Resolved]
